FAERS Safety Report 16992063 (Version 1)
Quarter: 2019Q4

REPORT INFORMATION
  Report Type: Spontaneous
  Country: US (occurrence: US)
  Receive Date: 20191105
  Receipt Date: 20191105
  Transmission Date: 20200122
  Serious: No
  Sender: FDA-Public Use
  Company Number: US-B.I. PHARMACEUTICALS,INC./RIDGEFIELD-2019-US-109646

PATIENT
  Age: 64 Year

DRUGS (1)
  1. OFEV [Suspect]
     Active Substance: NINTEDANIB
     Indication: PRODUCT USED FOR UNKNOWN INDICATION
     Route: 065

REACTIONS (8)
  - Weight decreased [Unknown]
  - Interstitial lung disease [Unknown]
  - Investigation [Unknown]
  - Feeling abnormal [Unknown]
  - Depression [Unknown]
  - Forced vital capacity abnormal [Unknown]
  - Fibrosis [Unknown]
  - Body mass index decreased [Unknown]
